FAERS Safety Report 21624650 (Version 1)
Quarter: 2022Q4

REPORT INFORMATION
  Report Type: Spontaneous
  Country: GB (occurrence: None)
  Receive Date: 20221121
  Receipt Date: 20221121
  Transmission Date: 20230112
  Serious: Yes (Death)
  Sender: FDA-Public Use
  Company Number: GB-ROCHE-3221241

PATIENT
  Sex: Female

DRUGS (1)
  1. TOCILIZUMAB [Suspect]
     Active Substance: TOCILIZUMAB
     Indication: Rheumatoid arthritis
     Route: 058

REACTIONS (1)
  - Death [Fatal]

NARRATIVE: CASE EVENT DATE: 20221026
